FAERS Safety Report 24570798 (Version 2)
Quarter: 2024Q4

REPORT INFORMATION
  Report Type: Spontaneous
  Country: JP (occurrence: JP)
  Receive Date: 20241101
  Receipt Date: 20241114
  Transmission Date: 20250115
  Serious: No
  Sender: TAKEDA
  Company Number: JP-TAKEDA-2024TJP015732

PATIENT
  Age: 8 Decade
  Sex: Female
  Weight: 53 kg

DRUGS (4)
  1. VONVENDI [Suspect]
     Active Substance: VON WILLEBRAND FACTOR (RECOMBINANT)
     Indication: Von Willebrand^s disease
     Dosage: 1300 INTERNATIONAL UNIT
     Dates: start: 20240708, end: 20240712
  2. VONVENDI [Suspect]
     Active Substance: VON WILLEBRAND FACTOR (RECOMBINANT)
     Indication: Haematuria
     Dosage: 1300 INTERNATIONAL UNIT
     Dates: start: 20241030, end: 20241030
  3. VONVENDI [Suspect]
     Active Substance: VON WILLEBRAND FACTOR (RECOMBINANT)
     Dosage: 1300 INTERNATIONAL UNIT, 1/WEEK
  4. ADYNOVATE [Concomitant]
     Active Substance: ANTIHEMOPHILIC FACTOR, HUMAN RECOMBINANT
     Dosage: 1500 INTERNATIONAL UNIT, 2/WEEK
     Dates: start: 20240708, end: 20240712

REACTIONS (4)
  - Intentional underdose [Recovered/Resolved]
  - Off label use [Recovered/Resolved]
  - Intentional underdose [Unknown]
  - No adverse event [Recovered/Resolved]

NARRATIVE: CASE EVENT DATE: 20240708
